FAERS Safety Report 6913514-7 (Version None)
Quarter: 2010Q3

REPORT INFORMATION
  Report Type: 
  Country: None (occurrence: None)
  Receive Date: 20100803
  Receipt Date: 20100723
  Transmission Date: 20110219
  Serious: Yes (Other)
  Sender: FDA-Public Use
  Company Number: JP-1182005

PATIENT
  Age: 67 Year
  Sex: Female

DRUGS (3)
  1. TRAVATAN Z [Suspect]
     Indication: GLAUCOMA
     Dosage: 1 GTT QD OD OPHTHALMIC
     Route: 047
     Dates: start: 20100412, end: 20100507
  2. AZOPT [Concomitant]
  3. SANPILO (PILOCARPINE HYDROCHLORIDE) [Concomitant]

REACTIONS (1)
  - MACULAR OEDEMA [None]
